FAERS Safety Report 5448455-8 (Version None)
Quarter: 2007Q3

REPORT INFORMATION
  Report Type: 
  Country: None (occurrence: None)
  Receive Date: 20070911
  Receipt Date: 20070827
  Transmission Date: 20080115
  Serious: Yes (Hospitalization)
  Sender: FDA-Public Use
  Company Number: US-ELI_LILLY_AND_COMPANY-US200707007166

PATIENT
  Age: 80 Year
  Sex: Female

DRUGS (8)
  1. FORTEO [Suspect]
     Indication: OSTEOPOROSIS
     Dosage: UNK, UNK
     Dates: start: 20070720
  2. EVISTA [Suspect]
     Indication: OSTEOPENIA
     Dosage: 60 MG, UNK
     Dates: start: 20030101
  3. CALCIUM [Concomitant]
  4. VITAMIN D [Concomitant]
  5. MULTI-VITAMIN [Concomitant]
  6. FERROUS SULFATE TAB [Concomitant]
  7. DIOVAN [Concomitant]
  8. ENTOCORT EC [Concomitant]

REACTIONS (4)
  - ARTHRALGIA [None]
  - KNEE ARTHROPLASTY [None]
  - OSTEOPOROSIS [None]
  - TEARFULNESS [None]
